FAERS Safety Report 19780622 (Version 2)
Quarter: 2022Q2

REPORT INFORMATION
  Report Type: Spontaneous
  Country: US (occurrence: US)
  Receive Date: 20210902
  Receipt Date: 20220406
  Transmission Date: 20220721
  Serious: No
  Sender: FDA-Public Use
  Company Number: US-PFIZER INC-2021606456

PATIENT
  Age: 69 Year
  Sex: Female
  Weight: 77.098 kg

DRUGS (1)
  1. IBRANCE [Suspect]
     Active Substance: PALBOCICLIB
     Indication: Breast cancer female
     Dosage: 75 MG, CYCLIC (21 DAYS ON, THEN 7 DAYS OFF)
     Route: 048
     Dates: start: 20210303

REACTIONS (2)
  - Vision blurred [Unknown]
  - Platelet count decreased [Unknown]

NARRATIVE: CASE EVENT DATE: 20210101
